FAERS Safety Report 24740662 (Version 1)
Quarter: 2024Q4

REPORT INFORMATION
  Report Type: Spontaneous
  Country: US (occurrence: US)
  Receive Date: 20241217
  Receipt Date: 20241217
  Transmission Date: 20250115
  Serious: No
  Sender: ENDO
  Company Number: US-ENDO USA, INC.-2024-003419

PATIENT
  Sex: Male

DRUGS (1)
  1. XIAFLEX [Suspect]
     Active Substance: COLLAGENASE CLOSTRIDIUM HISTOLYTICUM
     Indication: Peyronie^s disease
     Dosage: 0.58 MILLIGRAM, UNKNOWN (CYCLE 1, INJECTION 1)
     Route: 026

REACTIONS (4)
  - Swelling [Not Recovered/Not Resolved]
  - Pain [Recovered/Resolved]
  - Penile contusion [Not Recovered/Not Resolved]
  - Nodule [Not Recovered/Not Resolved]
